FAERS Safety Report 9775007 (Version 1)
Quarter: 2013Q4

REPORT INFORMATION
  Report Type: Spontaneous
  Country: US (occurrence: US)
  Receive Date: 20131220
  Receipt Date: 20131220
  Transmission Date: 20140711
  Serious: No
  Sender: FDA-Public Use
  Company Number: US-GLAXOSMITHKLINE-A1036140A

PATIENT
  Age: 91 Year
  Sex: Male

DRUGS (11)
  1. AVODART [Suspect]
     Indication: BENIGN PROSTATIC HYPERPLASIA
     Dosage: 1CAPL PER DAY
     Route: 048
     Dates: start: 201208, end: 201209
  2. UNSPECIFIED INGREDIENT [Concomitant]
  3. GLUCOSAMINE [Concomitant]
  4. MULTIVITAMIN [Concomitant]
  5. SAW PALMETTO [Concomitant]
  6. UNKNOWN MEDICATION [Concomitant]
  7. SELENIUM [Concomitant]
  8. COQ10 [Concomitant]
  9. VITAMIN D3 [Concomitant]
  10. DIHYDROTACHYSTEROL [Concomitant]
  11. VITAMIN C [Concomitant]

REACTIONS (2)
  - Penile size reduced [Recovering/Resolving]
  - Erectile dysfunction [Unknown]
